FAERS Safety Report 14873604 (Version 2)
Quarter: 2018Q3

REPORT INFORMATION
  Report Type: Spontaneous
  Country: US (occurrence: US)
  Receive Date: 20180510
  Receipt Date: 20180705
  Transmission Date: 20181010
  Serious: Yes (Other)
  Sender: FDA-Public Use
  Company Number: US-JNJFOC-20180430657

PATIENT
  Age: 67 Year
  Sex: Female
  Weight: 92.99 kg

DRUGS (4)
  1. INVOKANA [Suspect]
     Active Substance: CANAGLIFLOZIN
     Indication: TYPE 2 DIABETES MELLITUS
     Route: 048
     Dates: start: 2016
  2. METFORMIN [Concomitant]
     Active Substance: METFORMIN HYDROCHLORIDE
     Dosage: 1 IN MORNING AND 1 IN NIGHT
     Route: 065
  3. VALSARTAN. [Concomitant]
     Active Substance: VALSARTAN
     Dosage: DOSE: 160/ 25 MG
     Route: 065
  4. INVOKANA [Suspect]
     Active Substance: CANAGLIFLOZIN
     Indication: TYPE 2 DIABETES MELLITUS
     Route: 048
     Dates: start: 201710, end: 201712

REACTIONS (12)
  - Chromaturia [Unknown]
  - Blood glucose increased [Recovering/Resolving]
  - Urinary tract infection [Recovering/Resolving]
  - Pruritus [Unknown]
  - Pollakiuria [Unknown]
  - Weight decreased [Unknown]
  - Bone pain [Unknown]
  - Rash [Unknown]
  - Foot fracture [Unknown]
  - Nocturia [Recovering/Resolving]
  - Hyperchlorhydria [Unknown]
  - Abdominal pain upper [Unknown]

NARRATIVE: CASE EVENT DATE: 201804
